FAERS Safety Report 23821634 (Version 3)
Quarter: 2024Q3

REPORT INFORMATION
  Report Type: Spontaneous
  Country: CA (occurrence: CA)
  Receive Date: 20240506
  Receipt Date: 20240826
  Transmission Date: 20241017
  Serious: Yes (Other)
  Sender: PFIZER
  Company Number: CA-PFIZER INC-202400100322

PATIENT
  Age: 56 Year
  Sex: Female

DRUGS (9)
  1. METHOTREXATE SODIUM [Suspect]
     Active Substance: METHOTREXATE SODIUM
     Indication: Crohn^s disease
     Dosage: 1 DF
     Route: 065
     Dates: start: 202303
  2. METHOTREXATE SODIUM [Suspect]
     Active Substance: METHOTREXATE SODIUM
     Dosage: 1 ML, WEEKLY
     Route: 065
     Dates: start: 202303
  3. ENTOCORT [Concomitant]
     Active Substance: BUDESONIDE
     Dosage: UNK, (30 NIGHTS)
     Route: 048
     Dates: start: 202403
  4. FOLIC ACID [Concomitant]
     Active Substance: FOLIC ACID
     Dosage: UNK
  5. INFLECTRA [Concomitant]
     Active Substance: INFLIXIMAB-DYYB
     Indication: Crohn^s disease
     Dosage: 600 MG, INDUCTION W0,2, THEN Q 8 WEEKS
     Route: 042
     Dates: start: 20240515
  6. INFLECTRA [Concomitant]
     Active Substance: INFLIXIMAB-DYYB
     Dosage: 600 MG (W 0,2, 6 THEN Q 8 WEEKS)
     Route: 042
     Dates: start: 20240626
  7. INFLECTRA [Concomitant]
     Active Substance: INFLIXIMAB-DYYB
     Dosage: 600 MG, W 0,2, 6 THEN Q 8 WEEKS (N/A MG, EVERY 8 WEEKS)
     Route: 042
     Dates: start: 20240821
  8. PREDNISONE [Concomitant]
     Active Substance: PREDNISONE
     Dosage: STOPPED DUE TO PATIENT REACTION, WAS ON FOR 9 MONTHS
     Dates: end: 202304
  9. MESALAMINE [Concomitant]
     Active Substance: MESALAMINE
     Dosage: 1 DF, DOSAGE INFO: UNKNOWN, 30 DAYS
     Route: 065
     Dates: start: 20240405

REACTIONS (8)
  - Uveitis [Unknown]
  - Drug ineffective for unapproved indication [Unknown]
  - Arthralgia [Unknown]
  - Erythema nodosum [Unknown]
  - Aphthous ulcer [Unknown]
  - Off label use [Unknown]
  - Condition aggravated [Recovering/Resolving]
  - Sleep disorder [Unknown]
